FAERS Safety Report 7977389-X (Version None)
Quarter: 2011Q4

REPORT INFORMATION
  Report Type: 
  Country: None (occurrence: None)
  Receive Date: 20111213
  Receipt Date: 20111125
  Transmission Date: 20120403
  Serious: Yes (Hospitalization, Other)
  Sender: FDA-Public Use
  Company Number: PHHY2011BR95684

PATIENT
  Sex: Male

DRUGS (5)
  1. DIOVAN [Suspect]
     Dosage: 320 MG, BID (WHEN BP INCREASED)
  2. ATORVASTATIN [Concomitant]
     Indication: BLOOD CHOLESTEROL
     Dosage: 40 MG, ONE TABLET DAILY
  3. AMIODARONE HYDROCHLORIDE [Concomitant]
     Indication: CARDIAC DISORDER
  4. DIOVAN [Suspect]
     Indication: HYPERTENSION
     Dosage: 160 MG, ONE TABLET DAILY
  5. DIOVAN [Suspect]
     Dosage: 320 MG, ONE TABLET DAILY

REACTIONS (13)
  - ERYTHEMA [None]
  - FATIGUE [None]
  - LIMB DISCOMFORT [None]
  - DYSPEPSIA [None]
  - VOMITING [None]
  - ARRHYTHMIA [None]
  - FORMICATION [None]
  - GASTRITIS [None]
  - CHEST PAIN [None]
  - INFARCTION [None]
  - NAUSEA [None]
  - ARTERIAL OCCLUSIVE DISEASE [None]
  - BLOOD PRESSURE DECREASED [None]
